FAERS Safety Report 17686113 (Version 3)
Quarter: 2021Q2

REPORT INFORMATION
  Report Type: Report from Study
  Country: US (occurrence: US)
  Receive Date: 20200420
  Receipt Date: 20210420
  Transmission Date: 20210716
  Serious: Yes (Other)
  Sender: FDA-Public Use
  Company Number: US-INCYTE CORPORATION-2020IN003017

PATIENT

DRUGS (2)
  1. JAKAFI [Suspect]
     Active Substance: RUXOLITINIB
     Indication: MYELOFIBROSIS
     Dosage: UNK
     Route: 048
     Dates: start: 201711, end: 201804
  2. JAKAFI [Suspect]
     Active Substance: RUXOLITINIB
     Indication: GRAFT VERSUS HOST DISEASE

REACTIONS (16)
  - General physical health deterioration [Unknown]
  - Fatigue [Unknown]
  - Depression [Unknown]
  - Splenomegaly [Unknown]
  - Portal vein thrombosis [Unknown]
  - Seasonal allergy [Unknown]
  - Withdrawal syndrome [Unknown]
  - Clostridium difficile infection [Unknown]
  - Bone pain [Unknown]
  - Weight decreased [Unknown]
  - Liver disorder [Unknown]
  - Product distribution issue [Unknown]
  - Graft versus host disease [Unknown]
  - Rash [Unknown]
  - Stress [Unknown]
  - Product availability issue [Unknown]

NARRATIVE: CASE EVENT DATE: 2017
